FAERS Safety Report 8795010 (Version 2)
Quarter: 2013Q4

REPORT INFORMATION
  Report Type: Spontaneous
  Country: US (occurrence: US)
  Receive Date: 20120917
  Receipt Date: 20131031
  Transmission Date: 20140711
  Serious: Yes (Other)
  Sender: FDA-Public Use
  Company Number: US-009507513-1209USA006068

PATIENT
  Sex: Female

DRUGS (1)
  1. SAPHRIS [Suspect]
     Dosage: 1 DF, HS
     Route: 048

REACTIONS (13)
  - Weight decreased [Unknown]
  - Hypoaesthesia oral [Unknown]
  - Unevaluable event [Unknown]
  - Dysphagia [Unknown]
  - Balance disorder [Unknown]
  - Nervousness [Unknown]
  - Ageusia [Unknown]
  - Confusional state [Unknown]
  - Dry mouth [Unknown]
  - Headache [Unknown]
  - Vision blurred [Unknown]
  - Speech disorder [Unknown]
  - Nausea [Unknown]
